FAERS Safety Report 15722026 (Version 1)
Quarter: 2018Q4

REPORT INFORMATION
  Report Type: Spontaneous
  Country: US (occurrence: US)
  Receive Date: 20181213
  Receipt Date: 20181213
  Transmission Date: 20190205
  Serious: Yes (Other)
  Sender: FDA-Public Use
  Company Number: None

PATIENT
  Age: 64 Year

DRUGS (1)
  1. LAMOTRIGINE 300MG X 2 DAILY [Suspect]
     Active Substance: LAMOTRIGINE
     Indication: MYOCLONUS
     Route: 048
     Dates: start: 201803, end: 201809

REACTIONS (5)
  - Essential tremor [None]
  - Hallucination, auditory [None]
  - Cognitive disorder [None]
  - Morbid thoughts [None]
  - Balance disorder [None]

NARRATIVE: CASE EVENT DATE: 20180807
